FAERS Safety Report 25326957 (Version 1)
Quarter: 2025Q2

REPORT INFORMATION
  Report Type: Spontaneous
  Country: FR (occurrence: FR)
  Receive Date: 20250517
  Receipt Date: 20250517
  Transmission Date: 20250716
  Serious: Yes (Other)
  Sender: JOHNSON AND JOHNSON
  Company Number: FR-JNJFOC-20250511367

PATIENT
  Age: 40 Year
  Sex: Female
  Weight: 60 kg

DRUGS (4)
  1. VELETRI [Suspect]
     Active Substance: EPOPROSTENOL
     Indication: Product used for unknown indication
     Route: 042
     Dates: end: 202504
  2. SOTATERCEPT [Suspect]
     Active Substance: SOTATERCEPT
     Indication: Product used for unknown indication
     Route: 065
     Dates: start: 202406
  3. BOSENTAN [Concomitant]
     Active Substance: BOSENTAN
     Indication: Pulmonary arterial hypertension
  4. ADEMPAS [Concomitant]
     Active Substance: RIOCIGUAT
     Indication: Pulmonary arterial hypertension

REACTIONS (6)
  - Brain natriuretic peptide increased [Unknown]
  - Hypotension [Unknown]
  - Anxiety [Unknown]
  - Infection [Recovering/Resolving]
  - Fatigue [Unknown]
  - Adverse event [Unknown]

NARRATIVE: CASE EVENT DATE: 20250401
